FAERS Safety Report 4741920-8 (Version None)
Quarter: 2005Q3

REPORT INFORMATION
  Report Type: 
  Country: None (occurrence: None)
  Receive Date: 20050801
  Receipt Date: 20050617
  Transmission Date: 20060218
  Serious: No
  Sender: FDA-Public Use
  Company Number: 2005PV000062

PATIENT
  Age: 29 Year
  Sex: Female
  Weight: 86.1834 kg

DRUGS (3)
  1. BYETTA [Suspect]
     Indication: DIABETES MELLITUS INSULIN-DEPENDENT
     Dosage: 5 UG;BID;SC
     Route: 058
     Dates: start: 20050616, end: 20050616
  2. LANTUS [Concomitant]
  3. HUMALOG [Concomitant]

REACTIONS (7)
  - BLOOD GLUCOSE INCREASED [None]
  - FATIGUE [None]
  - HEADACHE [None]
  - NAUSEA [None]
  - PYREXIA [None]
  - TREMOR [None]
  - VOMITING [None]
